FAERS Safety Report 6664142-2 (Version None)
Quarter: 2010Q2

REPORT INFORMATION
  Report Type: 
  Country: None (occurrence: None)
  Receive Date: 20100401
  Receipt Date: 20100326
  Transmission Date: 20101027
  Serious: Yes (Other)
  Sender: FDA-Public Use
  Company Number: B0643315A

PATIENT
  Sex: Female

DRUGS (2)
  1. KIVEXA [Suspect]
  2. VIRAMUNE [Suspect]
     Indication: HIV INFECTION
     Dates: start: 20070816, end: 20070830

REACTIONS (2)
  - ABORTION INDUCED [None]
  - RASH [None]
